FAERS Safety Report 17350237 (Version 1)
Quarter: 2020Q1

REPORT INFORMATION
  Report Type: Spontaneous
  Country: US (occurrence: US)
  Receive Date: 20200130
  Receipt Date: 20200130
  Transmission Date: 20200409
  Serious: No
  Sender: FDA-Public Use
  Company Number: US-TEVA-2020-US-1174686

PATIENT
  Age: 65 Year
  Sex: Female

DRUGS (2)
  1. CLONAZEPAM ACTAVIS [Suspect]
     Active Substance: CLONAZEPAM
     Indication: INSOMNIA
  2. CLONAZEPAM ACTAVIS [Suspect]
     Active Substance: CLONAZEPAM
     Indication: CHRONIC FATIGUE SYNDROME
     Route: 048

REACTIONS (2)
  - Product substitution issue [Unknown]
  - Therapeutic product effect incomplete [Unknown]
